FAERS Safety Report 21129690 (Version 4)
Quarter: 2023Q1

REPORT INFORMATION
  Report Type: Spontaneous
  Country: JP (occurrence: JP)
  Receive Date: 20220726
  Receipt Date: 20230301
  Transmission Date: 20230417
  Serious: Yes (Disabling, Other)
  Sender: FDA-Public Use
  Company Number: JP-JNJFOC-20220741211

PATIENT
  Age: 59 Year
  Sex: Female
  Weight: 45.5 kg

DRUGS (5)
  1. VELCADE [Suspect]
     Active Substance: BORTEZOMIB
     Indication: Plasma cell myeloma
     Dosage: 1.8 MILLIGRAM, 2/WEEK
     Route: 065
     Dates: start: 20211119, end: 2021
  2. VELCADE [Suspect]
     Active Substance: BORTEZOMIB
     Dosage: 1.8 MILLIGRAM, 2/WEEK
     Route: 065
     Dates: start: 2021, end: 20211229
  3. LENALIDOMIDE [Concomitant]
     Active Substance: LENALIDOMIDE
     Indication: Plasma cell myeloma
     Dosage: 5 MILLIGRAM, QD
     Route: 048
     Dates: start: 20211210, end: 20211229
  4. LENADEX [Concomitant]
     Active Substance: DEXAMETHASONE ACETATE
     Indication: Plasma cell myeloma
     Dosage: 20 MILLIGRAM, 2/WEEK
     Route: 048
     Dates: start: 20211122, end: 2021
  5. LENADEX [Concomitant]
     Active Substance: DEXAMETHASONE ACETATE
     Dosage: 20 MILLIGRAM, 2/WEEK
     Route: 048
     Dates: start: 2021, end: 20211229

REACTIONS (1)
  - Multiple system atrophy [Not Recovered/Not Resolved]

NARRATIVE: CASE EVENT DATE: 20211211
